FAERS Safety Report 10425823 (Version 1)
Quarter: 2014Q3

REPORT INFORMATION
  Report Type: Spontaneous
  Country: DE (occurrence: DE)
  Receive Date: 20140903
  Receipt Date: 20140903
  Transmission Date: 20150326
  Serious: Yes (Hospitalization, Disabling)
  Sender: FDA-Public Use
  Company Number: DE-ACCORD-025632

PATIENT
  Age: 70 Year
  Sex: Male

DRUGS (6)
  1. DIGITOXIN [Concomitant]
     Active Substance: DIGITOXIN
  2. METOPROLOL [Concomitant]
     Active Substance: METOPROLOL
  3. FUROSEMIDE. [Concomitant]
     Active Substance: FUROSEMIDE
  4. ASPIRIN. [Concomitant]
     Active Substance: ASPIRIN
  5. SIMVASTATIN. [Suspect]
     Active Substance: SIMVASTATIN
     Indication: HYPERCHOLESTEROLAEMIA
     Dosage: ABOUT 20 DAYS BEFORE ADMISSION DOSE DOUBLED FROM 40 MG/DAY TO 80 MG/DAY.
  6. LEVOFLOXACIN/LEVOFLOXACIN MESYLATE [Interacting]
     Active Substance: LEVOFLOXACIN
     Indication: PNEUMONIA
     Dosage: DOSE INCREASED TO 500MG/2*DAY.
     Route: 042

REACTIONS (5)
  - Rhabdomyolysis [Recovered/Resolved]
  - Hepatotoxicity [None]
  - Hepatocellular injury [Recovered/Resolved]
  - Drug interaction [Unknown]
  - Respiratory failure [None]
